FAERS Safety Report 21972711 (Version 1)
Quarter: 2023Q1

REPORT INFORMATION
  Report Type: Spontaneous
  Country: BE (occurrence: None)
  Receive Date: 20230209
  Receipt Date: 20230209
  Transmission Date: 20230418
  Serious: Yes (Other)
  Sender: FDA-Public Use
  Company Number: BE-ROCHE-3278086

PATIENT
  Age: 62 Year
  Sex: Male
  Weight: 91.9 kg

DRUGS (3)
  1. TECENTRIQ [Suspect]
     Active Substance: ATEZOLIZUMAB
     Indication: Neuroendocrine carcinoma
     Route: 041
     Dates: start: 20201006, end: 20221222
  2. CISPLATIN [Concomitant]
     Active Substance: CISPLATIN
     Indication: Neuroendocrine carcinoma
     Route: 065
     Dates: start: 20230131
  3. ETOPOSIDE [Concomitant]
     Active Substance: ETOPOSIDE
     Indication: Neuroendocrine carcinoma
     Route: 065
     Dates: start: 20230131

REACTIONS (5)
  - Off label use [Unknown]
  - Haemothorax [Not Recovered/Not Resolved]
  - Pleural effusion [Not Recovered/Not Resolved]
  - Hypermetabolism [Not Recovered/Not Resolved]
  - Pleural mass [Unknown]

NARRATIVE: CASE EVENT DATE: 20230104
